FAERS Safety Report 8196599-2 (Version None)
Quarter: 2012Q1

REPORT INFORMATION
  Report Type: 
  Country: None (occurrence: None)
  Receive Date: 20120309
  Receipt Date: 20120229
  Transmission Date: 20120608
  Serious: Yes (Disabling, Other)
  Sender: FDA-Public Use
  Company Number: SE-BAYER-2011-079012

PATIENT
  Age: 43 Year
  Sex: Female

DRUGS (1)
  1. YAZ [Suspect]
     Indication: PREMENSTRUAL SYNDROME
     Dosage: UNK
     Route: 048
     Dates: start: 20101118, end: 20110201

REACTIONS (10)
  - ASTHENIA [None]
  - HYPERHIDROSIS [None]
  - DISCOMFORT [None]
  - DECREASED APPETITE [None]
  - TREMOR [None]
  - FATIGUE [None]
  - WEIGHT DECREASED [None]
  - VISION BLURRED [None]
  - DIZZINESS [None]
  - DECUBITUS ULCER [None]
